FAERS Safety Report 12315920 (Version 1)
Quarter: 2016Q2

REPORT INFORMATION
  Report Type: Report from Study
  Country: FR (occurrence: FR)
  Receive Date: 20160428
  Receipt Date: 20160428
  Transmission Date: 20160815
  Serious: Yes (Death, Hospitalization)
  Sender: FDA-Public Use
  Company Number: FR-ABBVIE-16P-056-1604637-00

PATIENT
  Sex: Male

DRUGS (1)
  1. DUODOPA [Suspect]
     Active Substance: CARBIDOPA\LEVODOPA
     Indication: PARKINSON^S DISEASE
     Dosage: AM DOSE 7ML; EXTRA DOSE 1.5ML; CONT FLOW RATE DURING THE DAY 4.8 ML/H FROM 07:00AM-08:00PM
     Route: 050

REACTIONS (3)
  - Device issue [Unknown]
  - Death [Fatal]
  - Agitation [Unknown]

NARRATIVE: CASE EVENT DATE: 20160410
